FAERS Safety Report 10163057 (Version 2)
Quarter: 2015Q3

REPORT INFORMATION
  Report Type: Spontaneous
  Country: DK (occurrence: DK)
  Receive Date: 20140509
  Receipt Date: 20150809
  Transmission Date: 20151125
  Serious: Yes (Disabling)
  Sender: FDA-Public Use
  Company Number: PHHY2014DK053683

PATIENT
  Age: 75 Year
  Sex: Female
  Weight: 44 kg

DRUGS (8)
  1. ALENDRONATE SANDOZ [Suspect]
     Active Substance: ALENDRONATE SODIUM
     Indication: OSTEOPOROSIS
     Dosage: 70 MG, QW
     Route: 048
     Dates: start: 2008
  2. AMLODIPIN [Concomitant]
     Active Substance: AMLODIPINE BESYLATE
     Indication: HYPERTENSION
     Route: 065
  3. OLANZAPIN [Concomitant]
     Active Substance: OLANZAPINE
     Indication: DEPRESSION
     Route: 065
  4. CLOPIDOGREL [Concomitant]
     Active Substance: CLOPIDOGREL BISULFATE
     Indication: ARTERIOSCLEROSIS
     Route: 065
  5. SIMVASTATIN. [Concomitant]
     Active Substance: SIMVASTATIN
     Indication: HYPERCHOLESTEROLAEMIA
     Route: 065
  6. LANSOPRAZOLE. [Concomitant]
     Active Substance: LANSOPRAZOLE
     Indication: GASTRIC PH DECREASED
     Route: 065
  7. SERTRALINE [Concomitant]
     Active Substance: SERTRALINE HYDROCHLORIDE
     Indication: DEPRESSION
     Route: 065
  8. LOSARTANKALIUM [Concomitant]
     Active Substance: LOSARTAN
     Indication: HYPERTENSION
     Route: 065

REACTIONS (4)
  - Impaired healing [Unknown]
  - Pain in jaw [Recovered/Resolved]
  - Osteonecrosis of jaw [Recovered/Resolved]
  - Osteomyelitis [Recovered/Resolved]

NARRATIVE: CASE EVENT DATE: 20131201
